FAERS Safety Report 4624606-X (Version None)
Quarter: 2005Q2

REPORT INFORMATION
  Report Type: 
  Country: None (occurrence: None)
  Receive Date: 20050325
  Receipt Date: 20050121
  Transmission Date: 20051028
  Serious: No
  Sender: FDA-Public Use
  Company Number: USA050188986

PATIENT
  Age: 83 Year
  Sex: Female
  Weight: 67 kg

DRUGS (12)
  1. FORTEO [Suspect]
     Indication: OSTEOPOROSIS
     Dates: start: 20041025
  2. POTASSIUM CHLORIDE [Concomitant]
  3. LOZOL [Concomitant]
  4. ATENOLOL [Concomitant]
  5. MULTIVITAMIN [Concomitant]
  6. TAMOXIFEN CITRATE [Concomitant]
  7. SYNTHROID [Concomitant]
  8. DARVOCET-N 100 [Concomitant]
  9. GLUCOSAMINE [Concomitant]
  10. CALCIUM GLUCONATE [Concomitant]
  11. VITAMIN C [Concomitant]
  12. VITAMIN D [Concomitant]

REACTIONS (3)
  - BODY HEIGHT DECREASED [None]
  - INJECTION SITE PAIN [None]
  - RENAL DISORDER [None]
